FAERS Safety Report 12787181 (Version 2)
Quarter: 2019Q3

REPORT INFORMATION
  Report Type: Spontaneous
  Country: US (occurrence: US)
  Receive Date: 20160928
  Receipt Date: 20190801
  Transmission Date: 20191004
  Serious: Yes (Hospitalization, Congenital Anomaly, Other)
  Sender: FDA-Public Use
  Company Number: US-APOTEX-2016AP012536

PATIENT

DRUGS (1)
  1. PAXIL [Suspect]
     Active Substance: PAROXETINE HYDROCHLORIDE
     Indication: MAJOR DEPRESSION
     Dosage: 20 MG, UNK, 1N
     Route: 064

REACTIONS (10)
  - Drug withdrawal syndrome [Recovered/Resolved]
  - Respiratory disorder [Unknown]
  - Extrapyramidal disorder [Recovered/Resolved]
  - Foetal exposure during pregnancy [Unknown]
  - Patent ductus arteriosus [Unknown]
  - Respiratory distress [Unknown]
  - Dyspnoea [Unknown]
  - Atrial septal defect [Unknown]
  - Cardiac murmur [Unknown]
  - Heart sounds abnormal [Unknown]

NARRATIVE: CASE EVENT DATE: 19990606
